FAERS Safety Report 18817452 (Version 4)
Quarter: 2021Q3

REPORT INFORMATION
  Report Type: Report from Study
  Country: US (occurrence: US)
  Receive Date: 20210201
  Receipt Date: 20210708
  Transmission Date: 20211014
  Serious: Yes (Other)
  Sender: FDA-Public Use
  Company Number: US-BAYER-2020-286320

PATIENT
  Age: 87 Year
  Sex: Male

DRUGS (3)
  1. XOFIGO [Suspect]
     Active Substance: RADIUM RA-223 DICHLORIDE
     Indication: METASTASES TO BONE
     Dosage: UNK
     Dates: start: 20201203, end: 20201203
  2. XOFIGO [Suspect]
     Active Substance: RADIUM RA-223 DICHLORIDE
     Indication: HORMONE-REFRACTORY PROSTATE CANCER
     Dosage: 107.70 ?CI, Q4WK
     Dates: start: 20201030, end: 20201030
  3. ASPIRIN [ACETYLSALICYLIC ACID] [Concomitant]
     Active Substance: ASPIRIN
     Dosage: 81 MG, UNK

REACTIONS (7)
  - Skin haemorrhage [None]
  - Skin abrasion [None]
  - Urticaria [Recovering/Resolving]
  - Pain of skin [Recovered/Resolved]
  - Musculoskeletal chest pain [None]
  - Skin irritation [None]
  - Pruritus [Recovering/Resolving]

NARRATIVE: CASE EVENT DATE: 20201228
